FAERS Safety Report 23288588 (Version 1)
Quarter: 2023Q4

REPORT INFORMATION
  Report Type: Spontaneous
  Country: US (occurrence: US)
  Receive Date: 20231212
  Receipt Date: 20231212
  Transmission Date: 20240110
  Serious: No
  Sender: FDA-Public Use
  Company Number: US-SA-SAC20231205000129

PATIENT
  Sex: Male

DRUGS (7)
  1. DUPIXENT [Suspect]
     Active Substance: DUPILUMAB
     Indication: Eosinophilic oesophagitis
     Dosage: 300 MG, QOW
     Route: 058
  2. DUPIXENT [Suspect]
     Active Substance: DUPILUMAB
     Indication: Heart transplant
  3. DUPIXENT [Suspect]
     Active Substance: DUPILUMAB
     Indication: Physical examination
  4. DUPIXENT [Suspect]
     Active Substance: DUPILUMAB
     Indication: Heart disease congenital
  5. DUPIXENT [Suspect]
     Active Substance: DUPILUMAB
     Indication: Eosinophilic gastritis
  6. DUPIXENT [Suspect]
     Active Substance: DUPILUMAB
     Indication: Gastroenteritis
  7. DUPIXENT [Suspect]
     Active Substance: DUPILUMAB
     Indication: Poor feeding infant

REACTIONS (2)
  - Product use in unapproved indication [Unknown]
  - Inappropriate schedule of product administration [Unknown]
